FAERS Safety Report 10343075 (Version 2)
Quarter: 2014Q3

REPORT INFORMATION
  Report Type: Report from Study
  Country: US (occurrence: US)
  Receive Date: 20140725
  Receipt Date: 20140725
  Transmission Date: 20150326
  Serious: Yes (Hospitalization, Disabling)
  Sender: FDA-Public Use
  Company Number: US-ASTELLAS-2014EU007551

PATIENT
  Age: 77 Year
  Sex: Male

DRUGS (28)
  1. LUCENTIS [Concomitant]
     Active Substance: RANIBIZUMAB
     Indication: MACULAR DEGENERATION
  2. LANTUS [Concomitant]
     Active Substance: INSULIN GLARGINE
     Indication: HYPERGLYCAEMIA
  3. NOVALIN [Concomitant]
     Indication: DIABETES MELLITUS
     Dosage: UNK, AS NEEDED
     Route: 058
     Dates: start: 2005
  4. TRAMADOL [Concomitant]
     Active Substance: TRAMADOL
     Indication: ARTHRITIS
     Dosage: UNK UNK, AS NEEDED
     Route: 048
  5. TRAMADOL [Concomitant]
     Active Substance: TRAMADOL
     Indication: BACK PAIN
  6. TRAMADOL [Concomitant]
     Active Substance: TRAMADOL
     Indication: MUSCULOSKELETAL PAIN
  7. ACETAMINOPHEN. [Concomitant]
     Active Substance: ACETAMINOPHEN
     Indication: ARTHRALGIA
     Route: 048
     Dates: start: 2010
  8. LUPRON [Concomitant]
     Active Substance: LEUPROLIDE ACETATE
     Indication: PROSTATE CANCER
     Dosage: 22.5 MG, 1 IN 3 MONTH
     Route: 030
     Dates: start: 20130528
  9. CARVEDILOL. [Concomitant]
     Active Substance: CARVEDILOL
     Indication: HYPERTENSION
     Route: 048
     Dates: start: 2008
  10. LEVOTHYROXINE [Concomitant]
     Active Substance: LEVOTHYROXINE
     Indication: HYPOTHYROIDISM
     Route: 048
     Dates: start: 20110720
  11. OCUVITE LUTEIN                     /06812801/ [Concomitant]
     Indication: AGE-RELATED MACULAR DEGENERATION
     Route: 048
     Dates: start: 20120125
  12. LUCENTIS [Concomitant]
     Active Substance: RANIBIZUMAB
     Indication: DIABETIC RETINOPATHY
     Dosage: UNK UNK, 1 IN 6 WEEK
     Route: 031
     Dates: start: 20120125
  13. ATORVASTATIN [Concomitant]
     Active Substance: ATORVASTATIN
     Indication: HYPERCHOLESTEROLAEMIA
     Route: 048
     Dates: start: 2003
  14. ENZALUTAMIDE [Suspect]
     Active Substance: ENZALUTAMIDE
     Indication: PROSTATE CANCER
     Route: 048
     Dates: start: 20110718
  15. ASPIRIN. [Concomitant]
     Active Substance: ASPIRIN
     Indication: PROPHYLAXIS
     Route: 048
     Dates: start: 2008
  16. LANTUS [Concomitant]
     Active Substance: INSULIN GLARGINE
     Indication: DIABETES MELLITUS
     Dosage: UNK UNK, AS NEEDED
     Route: 058
     Dates: start: 2005
  17. BYETTA [Concomitant]
     Active Substance: EXENATIDE
     Indication: DIABETES MELLITUS
     Dosage: 0.1 MG, AS NEEDED
     Route: 058
     Dates: start: 2008
  18. MAGNESIUM [Concomitant]
     Active Substance: MAGNESIUM
     Indication: HYPOMAGNESAEMIA
     Route: 048
     Dates: start: 20140210
  19. CEPHALEXIN                         /00145501/ [Concomitant]
     Active Substance: CEPHALEXIN
     Indication: PRODUCT USED FOR UNKNOWN INDICATION
     Dosage: UNK UNK, UNKNOWN FREQ.
     Route: 065
     Dates: start: 20140425
  20. ENZALUTAMIDE [Suspect]
     Active Substance: ENZALUTAMIDE
     Indication: PROSTATE CANCER
     Route: 048
     Dates: start: 20140227
  21. CALCIUM WITH VITAMIN D             /00944201/ [Concomitant]
     Active Substance: CALCIUM\VITAMIN D
     Indication: SUPPLEMENTATION THERAPY
     Route: 048
     Dates: start: 2008
  22. BYETTA [Concomitant]
     Active Substance: EXENATIDE
     Indication: HYPERGLYCAEMIA
     Dates: start: 2008
  23. TRAMADOL [Concomitant]
     Active Substance: TRAMADOL
     Indication: MUSCULOSKELETAL PAIN
  24. LUPRON [Concomitant]
     Active Substance: LEUPROLIDE ACETATE
     Dosage: 22.5 MG, 1 IN 4 MONTH
     Route: 030
     Dates: start: 2009
  25. MULTIVITAMIN                       /00097801/ [Concomitant]
     Active Substance: VITAMINS
     Indication: SUPPLEMENTATION THERAPY
     Route: 048
  26. NOVALIN [Concomitant]
     Indication: HYPERGLYCAEMIA
  27. FLOMAX [Concomitant]
     Active Substance: TAMSULOSIN HYDROCHLORIDE
     Indication: PRODUCT USED FOR UNKNOWN INDICATION
     Dosage: UNK UNK, UNKNOWN FREQ.
     Route: 065
     Dates: start: 20140425
  28. MAGNESIUM OXIDE. [Concomitant]
     Active Substance: MAGNESIUM OXIDE
     Indication: HYPOMAGNESAEMIA
     Route: 048
     Dates: start: 20140210

REACTIONS (2)
  - Fall [Recovered/Resolved with Sequelae]
  - Cervical cord compression [Recovered/Resolved with Sequelae]

NARRATIVE: CASE EVENT DATE: 20140425
